FAERS Safety Report 4313078-0 (Version None)
Quarter: 2004Q1

REPORT INFORMATION
  Report Type: 
  Country: None (occurrence: None)
  Receive Date: 20040303
  Receipt Date: 19961004
  Transmission Date: 20041129
  Serious: Yes (Death, Life-Threatening, Other)
  Sender: FDA-Public Use
  Company Number: CL-199600028

PATIENT
  Age: 62 Year
  Sex: Male
  Weight: 75.0703 kg

DRUGS (15)
  1. REMICADE [Suspect]
     Indication: CROHN'S DISEASE
     Dosage: 10 MG/KG, 1 IN 1 TOTAL, INTRAVENOUS
     Route: 042
     Dates: start: 19951120
  2. PLACEBO (PLACEBO) [Suspect]
     Indication: CROHN'S DISEASE
     Dosage: INTRAVENOUS
     Route: 042
     Dates: start: 19951016
  3. PLACEBO (PLACEBO) [Suspect]
     Indication: CROHN'S DISEASE
     Dosage: INTRAVENOUS
     Route: 042
     Dates: start: 19960219
  4. PLACEBO (PLACEBO) [Suspect]
     Indication: CROHN'S DISEASE
     Dosage: INTRAVENOUS
     Route: 042
     Dates: start: 19960419
  5. PLACEBO (PLACEBO) [Suspect]
     Indication: CROHN'S DISEASE
     Dosage: INTRAVENOUS
     Route: 042
     Dates: start: 19960612
  6. PREDNISONE [Concomitant]
  7. IMURAN [Concomitant]
  8. MS CONTIN [Concomitant]
  9. FOLIC ACID [Concomitant]
  10. NYSTATIN (NYSTATIN) POWDER [Concomitant]
  11. MICRONASE [Concomitant]
  12. SELDANE [Concomitant]
  13. B-12 (CYANOCOBALAMIN) [Concomitant]
  14. CIPRO [Concomitant]
  15. TYLENOL [Concomitant]

REACTIONS (48)
  - ALPHA HAEMOLYTIC STREPTOCOCCAL INFECTION [None]
  - ANAEMIA [None]
  - AORTIC ATHEROSCLEROSIS [None]
  - ASTHENIA [None]
  - B-CELL LYMPHOMA [None]
  - BACK PAIN [None]
  - BENIGN PROSTATIC HYPERPLASIA [None]
  - BLOOD CULTURE POSITIVE [None]
  - BLOOD PRESSURE DECREASED [None]
  - BRONCHOPULMONARY ASPERGILLOSIS [None]
  - CANDIDIASIS [None]
  - CARDIAC FAILURE [None]
  - CYTOMEGALOVIRUS ANTIBODY POSITIVE [None]
  - DECUBITUS ULCER [None]
  - DEHYDRATION [None]
  - DIFFUSE LARGE B-CELL LYMPHOMA [None]
  - DUODENAL POLYP [None]
  - EMPHYSEMA [None]
  - FEBRILE NEUTROPENIA [None]
  - GASTROINTESTINAL ULCER [None]
  - GENERALISED OEDEMA [None]
  - HEPATIC INFARCTION [None]
  - KLEBSIELLA INFECTION [None]
  - LUNG NEOPLASM [None]
  - LYMPHADENOPATHY [None]
  - LYMPHOMA [None]
  - NAUSEA [None]
  - NODULE [None]
  - OESOPHAGEAL ULCER [None]
  - PERICARDIAL EFFUSION [None]
  - PLEURAL EFFUSION [None]
  - PNEUMONIA ASPIRATION [None]
  - RECTAL HAEMORRHAGE [None]
  - RECTAL ULCER [None]
  - RENAL FAILURE [None]
  - RENAL HAEMORRHAGE [None]
  - RENAL INFARCT [None]
  - RENAL TUBULAR NECROSIS [None]
  - RESPIRATORY DISTRESS [None]
  - RESPIRATORY FAILURE [None]
  - SEPSIS [None]
  - SEPTIC SHOCK [None]
  - SHOCK [None]
  - SPLENIC INFARCTION [None]
  - SPLENOMEGALY [None]
  - STAPHYLOCOCCAL INFECTION [None]
  - THROMBOCYTOPENIA [None]
  - URINARY BLADDER HAEMORRHAGE [None]
